FAERS Safety Report 6369661-4 (Version None)
Quarter: 2009Q3

REPORT INFORMATION
  Report Type: 
  Country: None (occurrence: None)
  Receive Date: 20090923
  Receipt Date: 20071119
  Transmission Date: 20100115
  Serious: Yes (Other)
  Sender: FDA-Public Use
  Company Number: US-ASTRAZENECA-2007UW12854

PATIENT
  Age: 586 Month
  Sex: Female
  Weight: 81.6 kg

DRUGS (8)
  1. SEROQUEL [Suspect]
     Indication: DEPRESSION
     Route: 048
     Dates: start: 20040101, end: 20060501
  2. SEROQUEL [Suspect]
     Route: 048
     Dates: end: 20051001
  3. SEROQUEL [Suspect]
     Route: 048
     Dates: start: 20051218
  4. NEURONTIN [Concomitant]
     Dosage: 300-1800 MG
     Route: 048
     Dates: start: 20051218
  5. CELEXA [Concomitant]
     Route: 048
     Dates: start: 20051218
  6. LEXAPRO [Concomitant]
     Route: 048
     Dates: start: 20051218
  7. CLONAZEPAM [Concomitant]
     Route: 048
     Dates: start: 20051218
  8. AMBIEN [Concomitant]
     Dosage: 10-12.5 MG
     Route: 048
     Dates: start: 20051218

REACTIONS (3)
  - DIABETES MELLITUS [None]
  - NEUROPATHY PERIPHERAL [None]
  - TYPE 2 DIABETES MELLITUS [None]
